FAERS Safety Report 15110561 (Version 3)
Quarter: 2018Q3

REPORT INFORMATION
  Report Type: Spontaneous
  Country: GB (occurrence: GB)
  Receive Date: 20180705
  Receipt Date: 20180810
  Transmission Date: 20181010
  Serious: Yes (Death, Other)
  Sender: FDA-Public Use
  Company Number: GB-PFIZER INC-2018267748

PATIENT
  Age: 32 Year
  Sex: Male

DRUGS (7)
  1. APOMORPHINE [Interacting]
     Active Substance: APOMORPHINE
     Dosage: UNK
     Dates: start: 20171027
  2. CLONAZEPAM. [Interacting]
     Active Substance: CLONAZEPAM
     Dosage: UNK
     Dates: start: 20171027
  3. PREGABALIN. [Suspect]
     Active Substance: PREGABALIN
     Dosage: UNK
     Dates: start: 20171027
  4. HEROIN [Interacting]
     Active Substance: DIAMORPHINE
  5. ALCOHOL. [Interacting]
     Active Substance: ALCOHOL
     Dosage: UNK
  6. COCAINE [Interacting]
     Active Substance: COCAINE
  7. APOKYN [Suspect]
     Active Substance: APOMORPHINE HYDROCHLORIDE
     Dosage: UNK
     Dates: start: 20171027

REACTIONS (6)
  - Intentional overdose [Fatal]
  - Toxicity to various agents [Fatal]
  - Alcohol interaction [Fatal]
  - Drug interaction [Fatal]
  - Drug abuse [Fatal]
  - Coma [Fatal]

NARRATIVE: CASE EVENT DATE: 20171027
